FAERS Safety Report 5634216-3 (Version None)
Quarter: 2008Q1

REPORT INFORMATION
  Report Type: 
  Country: None (occurrence: None)
  Receive Date: 20080221
  Receipt Date: 20080221
  Transmission Date: 20080703
  Serious: Yes (Other)
  Sender: FDA-Public Use
  Company Number: None

PATIENT
  Sex: Male

DRUGS (1)
  1. IMMUNE GLOBULIN INTRAVENOUS (HUMAN) [Suspect]

REACTIONS (3)
  - BRONCHOSPASM [None]
  - DYSPNOEA EXERTIONAL [None]
  - VITAL CAPACITY DECREASED [None]
